FAERS Safety Report 11638387 (Version 1)
Quarter: 2015Q4

REPORT INFORMATION
  Report Type: Spontaneous
  Country: US (occurrence: US)
  Receive Date: 20151016
  Receipt Date: 20151016
  Transmission Date: 20160304
  Serious: Yes (Other)
  Sender: FDA-Public Use
  Company Number: US-BEN VENUE LABORATORIES-2015BV000091

PATIENT
  Age: 67 Year
  Sex: Female

DRUGS (11)
  1. IRINOTECAN HCL [Suspect]
     Active Substance: IRINOTECAN HYDROCHLORIDE
     Indication: ADENOCARCINOMA
     Dosage: 180 MG/M2, UNK (CYCLE 1)
     Route: 042
     Dates: start: 201311
  2. OXALIPLATIN. [Suspect]
     Active Substance: OXALIPLATIN
     Indication: ADENOCARCINOMA
     Dosage: 85 MG/M2, UNK (CYCLE 1)
     Route: 042
     Dates: start: 201311
  3. OXALIPLATIN. [Suspect]
     Active Substance: OXALIPLATIN
     Dosage: 85 MG/M2, UNK (CYCLE 2)
     Route: 042
     Dates: start: 2013
  4. ATROPINE. [Concomitant]
     Active Substance: ATROPINE
     Indication: ADENOCARCINOMA
     Dosage: 1 MG, UNK
  5. ONDANSETRON [Concomitant]
     Active Substance: ONDANSETRON
     Indication: ADENOCARCINOMA
     Dosage: 12 MG, UNK
     Route: 042
  6. IRINOTECAN HCL [Suspect]
     Active Substance: IRINOTECAN HYDROCHLORIDE
     Dosage: 180 MG/M2, UNK (CYCLE 2)
     Route: 042
     Dates: start: 2013
  7. 5 FU [Concomitant]
     Active Substance: FLUOROURACIL
     Dosage: 2400 MG/M2, UNK
     Route: 042
     Dates: start: 2013
  8. LEUCOVORIN                         /00566701/ [Concomitant]
     Active Substance: LEUCOVORIN
     Indication: ADENOCARCINOMA
     Dosage: 400 MG/M2, UNK (CYCLE 1)
     Route: 042
     Dates: start: 201311
  9. DEXAMETHASONE. [Concomitant]
     Active Substance: DEXAMETHASONE
     Indication: ADENOCARCINOMA
     Dosage: 10 MG, UNK
  10. 5 FU [Concomitant]
     Active Substance: FLUOROURACIL
     Indication: ADENOCARCINOMA
     Dosage: 2400 MG/M2, UNK
     Route: 042
     Dates: start: 201311
  11. LEUCOVORIN                         /00566701/ [Concomitant]
     Active Substance: LEUCOVORIN
     Dosage: 400 MG/M2, UNK (CYCLE 2)
     Route: 042
     Dates: start: 2013

REACTIONS (3)
  - Aphasia [Recovered/Resolved]
  - Quadriplegia [Recovered/Resolved]
  - Asthenia [Recovered/Resolved]

NARRATIVE: CASE EVENT DATE: 201311
